FAERS Safety Report 7465807-5 (Version None)
Quarter: 2011Q2

REPORT INFORMATION
  Report Type: 
  Country: None (occurrence: None)
  Receive Date: 20110428
  Receipt Date: 20110413
  Transmission Date: 20111010
  Serious: Yes (Life-Threatening, Hospitalization, Other)
  Sender: FDA-Public Use
  Company Number: 2011MA003843

PATIENT
  Age: 65 Year
  Sex: Female

DRUGS (7)
  1. METOPROLOL TARTRATE [Concomitant]
  2. PERINDOPRIL ERBUMINE [Concomitant]
  3. RIFAMPIN [Suspect]
     Indication: OSTEOMYELITIS
     Dosage: 600 MG;QD;PO
  4. ACETYL SALICYLIC ACID USP BAT [Concomitant]
  5. VANCOMYCIN [Concomitant]
  6. GENTAMICIN [Concomitant]
  7. CEFTOBIPROLE [Concomitant]

REACTIONS (6)
  - GAMMA-GLUTAMYLTRANSFERASE INCREASED [None]
  - DRUG RASH WITH EOSINOPHILIA AND SYSTEMIC SYMPTOMS [None]
  - HYPERBILIRUBINAEMIA [None]
  - TRANSAMINASES INCREASED [None]
  - AGRANULOCYTOSIS [None]
  - CARDIAC VALVE VEGETATION [None]
